FAERS Safety Report 23540957 (Version 9)
Quarter: 2024Q4

REPORT INFORMATION
  Report Type: Report from Study
  Country: ZA (occurrence: ZA)
  Receive Date: 20240219
  Receipt Date: 20241202
  Transmission Date: 20250115
  Serious: Yes (Hospitalization, Other)
  Sender: MYLAN
  Company Number: ZA-MYLANLABS-2024M1015422

PATIENT
  Age: 20 Year
  Sex: Male
  Weight: 56.5 kg

DRUGS (17)
  1. DELAMANID [Suspect]
     Active Substance: DELAMANID
     Indication: Tuberculosis
     Dosage: 300 MILLIGRAM, QD
     Route: 048
     Dates: start: 20231005
  2. DELAMANID [Suspect]
     Active Substance: DELAMANID
     Dosage: 100 MILLIGRAM, BID
     Route: 065
     Dates: start: 20240209, end: 20240316
  3. DELAMANID [Suspect]
     Active Substance: DELAMANID
     Dosage: UNK
     Route: 065
     Dates: start: 20240604
  4. LINEZOLID [Suspect]
     Active Substance: LINEZOLID
     Indication: Tuberculosis
     Dosage: 1200 MILLIGRAM, QD
     Route: 048
     Dates: start: 20231005, end: 20231106
  5. LINEZOLID [Suspect]
     Active Substance: LINEZOLID
     Dosage: 1200 MILLIGRAM, 3XW
     Route: 048
     Dates: start: 20231107
  6. LINEZOLID [Suspect]
     Active Substance: LINEZOLID
     Dosage: 600 MILLIGRAM, QD
     Route: 065
     Dates: start: 20240209, end: 20240316
  7. LINEZOLID [Suspect]
     Active Substance: LINEZOLID
     Dosage: UNK
     Route: 065
     Dates: start: 20240604
  8. BEDAQUILINE [Suspect]
     Active Substance: BEDAQUILINE
     Indication: Tuberculosis
     Dosage: 200 MILLIGRAM, QD
     Route: 048
     Dates: start: 20231006, end: 20231205
  9. BEDAQUILINE [Suspect]
     Active Substance: BEDAQUILINE
     Dosage: 100 MILLIGRAM, QD
     Route: 048
     Dates: start: 20231206
  10. CLOFAZIMINE [Suspect]
     Active Substance: CLOFAZIMINE
     Indication: Tuberculosis
     Dosage: 300 MILLIGRAM, QD
     Route: 048
     Dates: start: 20231005, end: 20231023
  11. CLOFAZIMINE [Suspect]
     Active Substance: CLOFAZIMINE
     Dosage: 100 MILLIGRAM, QD
     Route: 048
     Dates: start: 20231024
  12. TERIZIDONE [Concomitant]
     Active Substance: TERIZIDONE
     Dosage: 750 MILLIGRAM, QD
     Route: 065
     Dates: end: 20240316
  13. LEVOFLOXACIN [Concomitant]
     Active Substance: LEVOFLOXACIN
     Dosage: 1 GRAM, QD
     Route: 065
     Dates: end: 20240316
  14. ISONIAZID [Concomitant]
     Active Substance: ISONIAZID
     Dosage: 700 MILLIGRAM, QD
     Route: 065
     Dates: end: 20240316
  15. PYRAZINAMIDE [Concomitant]
     Active Substance: PYRAZINAMIDE
     Dosage: 1.75 MILLIGRAM, QD
     Route: 065
     Dates: end: 20240316
  16. AUGMENTIN [Concomitant]
     Active Substance: AMOXICILLIN\CLAVULANATE POTASSIUM
     Dosage: 325 MILLIGRAM, BID
     Route: 048
     Dates: end: 20240316
  17. MEROPENEM [Concomitant]
     Active Substance: MEROPENEM
     Dosage: 2 GRAM, BID
     Route: 042
     Dates: end: 20241025

REACTIONS (5)
  - Drug-induced liver injury [Recovered/Resolved]
  - Acute kidney injury [Recovered/Resolved]
  - Delirium [Recovered/Resolved]
  - Drug reaction with eosinophilia and systemic symptoms [Recovered/Resolved]
  - Pulmonary tuberculosis [Recovered/Resolved]

NARRATIVE: CASE EVENT DATE: 20240206
